FAERS Safety Report 6432270-2 (Version None)
Quarter: 2009Q4

REPORT INFORMATION
  Report Type: 
  Country: None (occurrence: None)
  Receive Date: 20091109
  Receipt Date: 20091026
  Transmission Date: 20100525
  Serious: Yes (Other)
  Sender: FDA-Public Use
  Company Number: PHHY2009SE47209

PATIENT
  Sex: Male

DRUGS (1)
  1. SANDOSTATIN [Suspect]
     Indication: HAEMATOCHEZIA
     Dosage: UNK
     Route: 058
     Dates: start: 20091019

REACTIONS (1)
  - VISUAL ACUITY REDUCED [None]
